FAERS Safety Report 4398661-9 (Version None)
Quarter: 2004Q3

REPORT INFORMATION
  Report Type: 
  Country: None (occurrence: None)
  Receive Date: 20040712
  Receipt Date: 20040630
  Transmission Date: 20050211
  Serious: No
  Sender: FDA-Public Use
  Company Number: RS004360-CDN

PATIENT
  Age: 68 Year
  Sex: Female
  Weight: 77.1115 kg

DRUGS (4)
  1. PARIET     (RABEPRAZOLE SODIUM) [Suspect]
     Dosage: ORAL
     Route: 048
     Dates: start: 20040226, end: 20040309
  2. METOPROLOL [Concomitant]
  3. ALDACTONE (SPIRNOLACTONE) [Concomitant]
  4. ENALAPRIL MALEATE [Concomitant]

REACTIONS (5)
  - BLOOD CREATINE INCREASED [None]
  - BLOOD UREA INCREASED [None]
  - DIARRHOEA [None]
  - DIZZINESS [None]
  - VOMITING [None]
